FAERS Safety Report 4628254-7 (Version None)
Quarter: 2005Q2

REPORT INFORMATION
  Report Type: 
  Country: None (occurrence: None)
  Receive Date: 20050406
  Receipt Date: 20050328
  Transmission Date: 20051028
  Serious: Yes (Other)
  Sender: FDA-Public Use
  Company Number: JP-JNJFOC-20050204691

PATIENT
  Sex: Male

DRUGS (9)
  1. RISPERDAL [Suspect]
     Route: 049
  2. RISPERDAL [Suspect]
     Indication: DELIRIUM
     Route: 049
  3. FAMOTIDINE [Concomitant]
     Indication: GASTRIC ULCER
     Route: 049
  4. TPN [Concomitant]
     Route: 042
  5. TPN [Concomitant]
     Route: 042
  6. TPN [Concomitant]
     Route: 042
  7. TPN [Concomitant]
     Indication: MALNUTRITION
     Route: 042
  8. DIAZEPAM [Concomitant]
     Route: 049
  9. LORMETAZEPAM [Concomitant]
     Route: 049

REACTIONS (2)
  - SOMNOLENCE [None]
  - WHITE BLOOD CELL COUNT DECREASED [None]
